FAERS Safety Report 8205679 (Version 5)
Quarter: 2013Q2

REPORT INFORMATION
  Report Type: Report from Study
  Country: NL (occurrence: NL)
  Receive Date: 20111028
  Receipt Date: 20130410
  Transmission Date: 20140414
  Serious: Yes (Other)
  Sender: FDA-Public Use
  Company Number: NL-CELGENEUS-114-21880-11102217

PATIENT
  Age: 68 Year
  Sex: Male
  Weight: 83 kg

DRUGS (10)
  1. REVLIMID [Suspect]
     Indication: PLASMA CELL MYELOMA
     Dosage: 10 MILLIGRAM
     Route: 048
     Dates: start: 20110410
  2. REVLIMID [Suspect]
     Route: 048
     Dates: start: 20111018
  3. REVLIMID [Suspect]
     Dosage: 10 MILLIGRAM
     Route: 048
     Dates: start: 20111003, end: 20111013
  4. REVLIMID [Suspect]
     Route: 048
     Dates: start: 20110727
  5. MELPHALAN [Suspect]
     Indication: PLASMA CELL MYELOMA
     Dosage: 14 MILLIGRAM
     Route: 048
     Dates: start: 20111003, end: 20111006
  6. MELPHALAN [Suspect]
     Route: 048
     Dates: start: 20110727
  7. PREDNISONE [Suspect]
     Indication: PLASMA CELL MYELOMA
     Route: 048
     Dates: start: 20111003, end: 20121006
  8. PREDNISONE [Suspect]
     Route: 048
     Dates: start: 20110727
  9. CIPROXIN [Concomitant]
     Indication: MALAISE
     Route: 048
     Dates: start: 20110823, end: 20110928
  10. CIPROXIN [Concomitant]
     Indication: PYREXIA

REACTIONS (1)
  - Infection [Recovered/Resolved]
